FAERS Safety Report 7350535-7 (Version None)
Quarter: 2011Q1

REPORT INFORMATION
  Report Type: 
  Country: None (occurrence: None)
  Receive Date: 20110309
  Receipt Date: 20110309
  Transmission Date: 20110831
  Serious: Yes (Life-Threatening, Hospitalization, Disabling)
  Sender: FDA-Public Use
  Company Number: None

PATIENT
  Age: 79 Year
  Sex: Male
  Weight: 48.9 kg

DRUGS (1)
  1. TEFLARO [Suspect]

REACTIONS (1)
  - THROMBOCYTOPENIA [None]
